FAERS Safety Report 4910849-4 (Version None)
Quarter: 2006Q1

REPORT INFORMATION
  Report Type: 
  Country: None (occurrence: None)
  Receive Date: 20060214
  Receipt Date: 20060202
  Transmission Date: 20060701
  Serious: Yes (Hospitalization)
  Sender: FDA-Public Use
  Company Number: SI-GLAXOSMITHKLINE-B0408920A

PATIENT
  Age: 77 Year
  Sex: Female
  Weight: 73 kg

DRUGS (7)
  1. ROSIGLITAZONE [Suspect]
     Dosage: 4MG PER DAY
     Route: 048
     Dates: start: 20030926, end: 20031224
  2. GLIBENKLAMID [Concomitant]
     Dosage: 10MG TWICE PER DAY
     Route: 048
  3. WARFARIN [Concomitant]
     Route: 048
  4. LASIX [Concomitant]
     Route: 048
  5. LANITOP [Concomitant]
     Route: 065
  6. PERINDOPRIL [Concomitant]
     Route: 048
  7. NOLVADEX [Concomitant]
     Route: 048

REACTIONS (2)
  - ATRIAL FIBRILLATION [None]
  - CARDIAC DISORDER [None]
